FAERS Safety Report 5947221-4 (Version None)
Quarter: 2008Q4

REPORT INFORMATION
  Report Type: 
  Country: None (occurrence: None)
  Receive Date: 20081110
  Receipt Date: 20081031
  Transmission Date: 20090506
  Serious: Yes (Hospitalization)
  Sender: FDA-Public Use
  Company Number: JP-ABBOTT-08P-087-0478700-00

PATIENT
  Sex: Male
  Weight: 70 kg

DRUGS (6)
  1. CEFDINIR [Suspect]
     Indication: DRUG USE FOR UNKNOWN INDICATION
     Route: 048
     Dates: start: 20071124, end: 20071126
  2. LOXOPROFEN [Suspect]
     Indication: PAIN
     Route: 048
     Dates: start: 20071125
  3. ACETAMINOPHEN [Suspect]
     Indication: PYREXIA
     Route: 048
     Dates: start: 20071125
  4. SOLITA-T3 [Concomitant]
     Indication: DRUG USE FOR UNKNOWN INDICATION
     Route: 050
     Dates: start: 20071125, end: 20071125
  5. THIAMINE HCL [Concomitant]
     Indication: DRUG USE FOR UNKNOWN INDICATION
     Route: 050
     Dates: start: 20071125, end: 20071125
  6. TACROLIMUS [Concomitant]
     Indication: DRUG USE FOR UNKNOWN INDICATION
     Dates: start: 20071125

REACTIONS (1)
  - HEPATIC FUNCTION ABNORMAL [None]
